FAERS Safety Report 14955543 (Version 2)
Quarter: 2018Q4

REPORT INFORMATION
  Report Type: Spontaneous
  Country: US (occurrence: US)
  Receive Date: 20180531
  Receipt Date: 20181129
  Transmission Date: 20190204
  Serious: No
  Sender: FDA-Public Use
  Company Number: US-SA-2018SA145577

PATIENT
  Age: 66 Year
  Sex: Male

DRUGS (3)
  1. BYSTOLIC [Concomitant]
     Active Substance: NEBIVOLOL HYDROCHLORIDE
     Indication: PRODUCT USED FOR UNKNOWN INDICATION
  2. LOSARTAN POTASSSIUM [Concomitant]
     Indication: PRODUCT USED FOR UNKNOWN INDICATION
  3. PRALUENT [Suspect]
     Active Substance: ALIROCUMAB
     Dosage: 75 MG, QOW
     Dates: start: 20160729

REACTIONS (1)
  - Vascular occlusion [Unknown]

NARRATIVE: CASE EVENT DATE: 20180519
